FAERS Safety Report 24217642 (Version 1)
Quarter: 2024Q3

REPORT INFORMATION
  Report Type: Spontaneous
  Country: IT (occurrence: IT)
  Receive Date: 20240816
  Receipt Date: 20240816
  Transmission Date: 20241017
  Serious: Yes (Death, Hospitalization, Other)
  Sender: BIOVITRUM
  Company Number: IT-BIOVITRUM-2024-IT-010908

PATIENT
  Age: 65 Year

DRUGS (6)
  1. ANAKINRA [Suspect]
     Active Substance: ANAKINRA
     Indication: VEXAS syndrome
     Dosage: DAILY
  2. ANAKINRA [Suspect]
     Active Substance: ANAKINRA
     Indication: Haemophagocytic lymphohistiocytosis
  3. CYCLOSPORINE [Suspect]
     Active Substance: CYCLOSPORINE
     Indication: VEXAS syndrome
     Dosage: DAILY
  4. CYCLOSPORINE [Suspect]
     Active Substance: CYCLOSPORINE
     Indication: Haemophagocytic lymphohistiocytosis
  5. HUMAN IMMUNOGLOBULIN G [Suspect]
     Active Substance: HUMAN IMMUNOGLOBULIN G
     Indication: VEXAS syndrome
     Dosage: FOR 5 DAYS
  6. HUMAN IMMUNOGLOBULIN G [Suspect]
     Active Substance: HUMAN IMMUNOGLOBULIN G
     Indication: Haemophagocytic lymphohistiocytosis

REACTIONS (4)
  - Haemophagocytic lymphohistiocytosis [Fatal]
  - Condition aggravated [Fatal]
  - VEXAS syndrome [Unknown]
  - Off label use [Unknown]
